FAERS Safety Report 6022767-1 (Version None)
Quarter: 2008Q4

REPORT INFORMATION
  Report Type: 
  Country: None (occurrence: None)
  Receive Date: 20081230
  Receipt Date: 20081216
  Transmission Date: 20090506
  Serious: Yes (Hospitalization)
  Sender: FDA-Public Use
  Company Number: JP-BAYER-200812937BYL

PATIENT
  Age: 84 Year
  Sex: Female
  Weight: 45 kg

DRUGS (7)
  1. AVELOX [Suspect]
     Indication: BRONCHOPNEUMONIA
     Dosage: TOTAL DAILY DOSE: 400 MG  UNIT DOSE: 400 MG
     Route: 048
     Dates: start: 20081117, end: 20081125
  2. CRAVIT [Suspect]
     Indication: BRONCHOPNEUMONIA
     Dosage: TOTAL DAILY DOSE: 300 MG  UNIT DOSE: 100 MG
     Route: 048
  3. GATIFLOXACIN [Suspect]
     Indication: BRONCHOPNEUMONIA
     Route: 048
  4. SEVEN E_P [Concomitant]
     Indication: DRUG USE FOR UNKNOWN INDICATION
     Dosage: TOTAL DAILY DOSE: 3 DF  UNIT DOSE: 1 DF
     Route: 048
  5. CALONAL [Concomitant]
     Indication: DRUG USE FOR UNKNOWN INDICATION
     Dosage: TOTAL DAILY DOSE: 400 MG  UNIT DOSE: 200 MG
     Route: 048
  6. AMLODIN OD [Concomitant]
     Indication: HYPERTENSION
     Dosage: TOTAL DAILY DOSE: 5 MG  UNIT DOSE: 5 MG
     Route: 048
     Dates: start: 20040226
  7. DEPAS [Concomitant]
     Indication: DEPRESSION
     Dosage: TOTAL DAILY DOSE: 1.5 MG  UNIT DOSE: 0.5 MG
     Route: 048
     Dates: start: 20040226

REACTIONS (2)
  - DISEASE PROGRESSION [None]
  - INTERSTITIAL LUNG DISEASE [None]
